FAERS Safety Report 8202753-3 (Version None)
Quarter: 2012Q1

REPORT INFORMATION
  Report Type: 
  Country: None (occurrence: None)
  Receive Date: 20120312
  Receipt Date: 20120312
  Transmission Date: 20120608
  Serious: Yes (Other)
  Sender: FDA-Public Use
  Company Number: None

PATIENT
  Age: 74 Year
  Sex: Female
  Weight: 79.378 kg

DRUGS (2)
  1. BACTRIM DS [Suspect]
     Indication: WOUND DRAINAGE
     Dosage: 800/160
     Route: 048
     Dates: start: 20120225, end: 20120226
  2. BACTRIM DS [Concomitant]
     Dosage: 800/160
     Route: 048
     Dates: start: 20120225, end: 20120226

REACTIONS (2)
  - HYPOTENSION [None]
  - ASTHENIA [None]
